FAERS Safety Report 5005279-3 (Version None)
Quarter: 2006Q2

REPORT INFORMATION
  Report Type: 
  Country: None (occurrence: None)
  Receive Date: 20060518
  Receipt Date: 20050929
  Transmission Date: 20061013
  Serious: Yes (Hospitalization)
  Sender: FDA-Public Use
  Company Number: JP-JPN-A20052315

PATIENT
  Age: 69 Year
  Sex: Female
  Weight: 46 kg

DRUGS (12)
  1. HEPSERA [Suspect]
     Indication: HEPATIC CIRRHOSIS
     Dosage: 10MG PER DAY
     Route: 048
     Dates: start: 20050323, end: 20051115
  2. ZEFIX [Concomitant]
     Indication: HEPATIC CIRRHOSIS
     Dosage: 100MG PER DAY
     Route: 048
     Dates: start: 20020516, end: 20051116
  3. PYDOXAL [Concomitant]
     Indication: VITAMIN B6 DEFICIENCY
     Dosage: 1TAB PER DAY
     Route: 048
  4. URSO [Concomitant]
     Indication: HEPATIC CIRRHOSIS
     Dosage: 300MG PER DAY
     Route: 048
  5. TAURINE [Concomitant]
     Indication: HEPATIC CIRRHOSIS
     Dosage: 3UNIT PER DAY
     Route: 048
  6. CYANOCOBALAMIN [Concomitant]
     Indication: NEUROPATHY PERIPHERAL
     Dosage: 3TAB PER DAY
     Route: 048
  7. MAGNESIUM OXIDE [Concomitant]
     Indication: CONSTIPATION
     Dosage: 1G PER DAY
     Route: 048
  8. LIPITOR [Concomitant]
     Indication: HYPERLIPIDAEMIA
     Dosage: 1TAB PER DAY
     Route: 048
  9. THYRADIN S [Concomitant]
     Indication: HYPOTHYROIDISM
     Dosage: 1TAB PER DAY
     Route: 048
     Dates: start: 20050701
  10. LASIX [Concomitant]
     Route: 048
  11. ALDACTONE [Concomitant]
     Route: 048
  12. TAKEPRON [Concomitant]
     Route: 048

REACTIONS (5)
  - ABASIA [None]
  - BLOOD CREATININE INCREASED [None]
  - BLOOD PHOSPHORUS DECREASED [None]
  - BLOOD POTASSIUM DECREASED [None]
  - MUSCULAR WEAKNESS [None]
